FAERS Safety Report 5325506-2 (Version None)
Quarter: 2007Q2

REPORT INFORMATION
  Report Type: 
  Country: None (occurrence: None)
  Receive Date: 20070515
  Receipt Date: 20070504
  Transmission Date: 20071010
  Serious: Yes (Other)
  Sender: FDA-Public Use
  Company Number: US-PFIZER INC-2007036978

PATIENT
  Sex: Female
  Weight: 66.818 kg

DRUGS (1)
  1. LYRICA [Suspect]
     Indication: VULVOVAGINAL DISCOMFORT

REACTIONS (3)
  - CYSTITIS NONINFECTIVE [None]
  - PAIN [None]
  - PELVIC PAIN [None]
